FAERS Safety Report 5646394-0 (Version None)
Quarter: 2008Q1

REPORT INFORMATION
  Report Type: 
  Country: None (occurrence: None)
  Receive Date: 20080303
  Receipt Date: 20080131
  Transmission Date: 20080703
  Serious: No
  Sender: FDA-Public Use
  Company Number: US-BAYER-200812839NA

PATIENT
  Age: 64 Year
  Sex: Male

DRUGS (9)
  1. LEVITRA [Suspect]
     Indication: ERECTILE DYSFUNCTION
     Dosage: TOTAL DAILY DOSE: 20 MG  UNIT DOSE: 20 MG
     Route: 048
     Dates: start: 20080128
  2. LEVITRA [Suspect]
     Dosage: TOTAL DAILY DOSE: 20 MG  UNIT DOSE: 20 MG
     Route: 048
     Dates: start: 20060101
  3. LEVITRA [Suspect]
     Dosage: TOTAL DAILY DOSE: 20 MG  UNIT DOSE: 20 MG
     Route: 048
     Dates: start: 20080130, end: 20080130
  4. HYDROCHLOROTHIAZIDE [Concomitant]
  5. DOXAZOSIN MESYLATE [Concomitant]
  6. PREVACID [Concomitant]
  7. HERBS [Concomitant]
  8. SALT PALMETTO [Concomitant]
  9. RED YEAST RICE [Concomitant]

REACTIONS (1)
  - ERECTILE DYSFUNCTION [None]
